FAERS Safety Report 5039667-6 (Version None)
Quarter: 2006Q2

REPORT INFORMATION
  Report Type: 
  Country: None (occurrence: None)
  Receive Date: 20060629
  Receipt Date: 20060522
  Transmission Date: 20061013
  Serious: Yes (Congenital Anomaly)
  Sender: FDA-Public Use
  Company Number: US-MERCK-0605USA04051B1

PATIENT
  Age: 0 Day
  Sex: Male
  Weight: 5 kg

DRUGS (6)
  1. SINGULAIR [Suspect]
     Indication: ASTHMA
     Dates: start: 20050101, end: 20051220
  2. KETEK [Suspect]
     Indication: BRONCHITIS
     Dates: start: 20050312, end: 20050317
  3. ADVAIR DISKUS 100/50 [Concomitant]
  4. UNIPHYL [Concomitant]
  5. ALBUTEROL [Concomitant]
  6. ORTHO TRI-CYCLEN [Concomitant]
     Indication: CONTRACEPTION

REACTIONS (1)
  - UPPER LIMB DEFORMITY [None]
